FAERS Safety Report 20862687 (Version 2)
Quarter: 2022Q3

REPORT INFORMATION
  Report Type: Spontaneous
  Country: US (occurrence: US)
  Receive Date: 20220523
  Receipt Date: 20220829
  Transmission Date: 20221026
  Serious: Yes (Other)
  Sender: FDA-Public Use
  Company Number: US-PFIZER INC-202200712620

PATIENT
  Age: 73 Year
  Sex: Male
  Weight: 83.91 kg

DRUGS (2)
  1. DOXAZOSIN MESYLATE [Suspect]
     Active Substance: DOXAZOSIN MESYLATE
     Indication: Prostatomegaly
     Dosage: 1 MG, 1X/DAY
     Route: 048
     Dates: start: 20220503
  2. LISINOPRIL [Concomitant]
     Active Substance: LISINOPRIL
     Indication: Blood pressure abnormal
     Dosage: 20 MG, 1X/DAY

REACTIONS (7)
  - Hallucination [Unknown]
  - Nephrolithiasis [Unknown]
  - Asthenia [Unknown]
  - Muscular weakness [Unknown]
  - Fatigue [Unknown]
  - Balance disorder [Unknown]
  - Irritability [Unknown]
